FAERS Safety Report 20092320 (Version 2)
Quarter: 2021Q4

REPORT INFORMATION
  Report Type: Spontaneous
  Country: SE (occurrence: SE)
  Receive Date: 20211119
  Receipt Date: 20211216
  Transmission Date: 20220303
  Serious: Yes (Other)
  Sender: FDA-Public Use
  Company Number: SE-ELI_LILLY_AND_COMPANY-SE202111003700

PATIENT
  Age: 48 Year
  Sex: Male

DRUGS (7)
  1. ZYPADHERA [Suspect]
     Active Substance: OLANZAPINE PAMOATE
     Indication: Schizophrenia
     Dosage: 405 MG, WEEKLY (1/W)
     Route: 030
     Dates: start: 201506
  2. ZYPADHERA [Suspect]
     Active Substance: OLANZAPINE PAMOATE
     Indication: Schizophrenia
     Dosage: 405 MG, WEEKLY (1/W)
     Route: 030
     Dates: start: 201506
  3. ZYPADHERA [Suspect]
     Active Substance: OLANZAPINE PAMOATE
     Indication: Schizophrenia
     Dosage: 405 MG, WEEKLY (1/W)
     Route: 030
     Dates: start: 201506
  4. ZOPICLONE [Concomitant]
     Active Substance: ZOPICLONE
     Indication: Sedative therapy
     Dosage: UNK, UNKNOWN
     Route: 065
  5. LAMOTRIGINE [Concomitant]
     Active Substance: LAMOTRIGINE
     Indication: Product used for unknown indication
     Dosage: UNK, UNKNOWN
     Route: 065
  6. SERTRALINE [Concomitant]
     Active Substance: SERTRALINE HYDROCHLORIDE
     Indication: Product used for unknown indication
     Dosage: UNK, UNKNOWN
     Route: 065
  7. MIRTAZAPINE [Concomitant]
     Active Substance: MIRTAZAPINE
     Indication: Product used for unknown indication
     Dosage: UNK, UNKNOWN
     Route: 065

REACTIONS (14)
  - Mobility decreased [Unknown]
  - Altered state of consciousness [Unknown]
  - Heart rate increased [Unknown]
  - Heart rate increased [Unknown]
  - Blood pressure abnormal [Unknown]
  - Blood pressure abnormal [Unknown]
  - Post-injection delirium sedation syndrome [Unknown]
  - Post-injection delirium sedation syndrome [Unknown]
  - Fatigue [Unknown]
  - Dysarthria [Unknown]
  - Agitation [Unknown]
  - Fatigue [Unknown]
  - Dizziness [Unknown]
  - Dysarthria [Unknown]

NARRATIVE: CASE EVENT DATE: 20190219
